FAERS Safety Report 8107719-X (Version None)
Quarter: 2012Q1

REPORT INFORMATION
  Report Type: 
  Country: None (occurrence: None)
  Receive Date: 20120202
  Receipt Date: 20120123
  Transmission Date: 20120608
  Serious: Yes (Other)
  Sender: FDA-Public Use
  Company Number: DE-JNJFOC-20120200303

PATIENT
  Sex: Male

DRUGS (2)
  1. PALEXIA RETARD [Suspect]
     Indication: NEURALGIA
     Dosage: 100 MG 2/DAY
     Route: 048
     Dates: start: 20111001, end: 20111123
  2. PALEXIA RETARD [Suspect]
     Dosage: 50 MG 2/DAY
     Route: 048
     Dates: start: 20111004, end: 20111001

REACTIONS (10)
  - DYSKINESIA [None]
  - OROPHARYNGEAL SPASM [None]
  - BLOOD PRESSURE INCREASED [None]
  - RHINORRHOEA [None]
  - TREMOR [None]
  - LACRIMATION INCREASED [None]
  - MOOD ALTERED [None]
  - BALANCE DISORDER [None]
  - TONGUE BITING [None]
  - DISORIENTATION [None]
